FAERS Safety Report 8779680 (Version 1)
Quarter: 2012Q4

REPORT INFORMATION
  Report Type: 
  Country: US (occurrence: US)
  Receive Date: 20120912
  Receipt Date: 20120912
  Transmission Date: 20130627
  Serious: No
  Sender: FDA-Public Use
  Company Number: US-TEVA-352859USA

PATIENT
  Sex: Male

DRUGS (3)
  1. QNASL [Suspect]
     Indication: RHINITIS ALLERGIC
     Route: 055
     Dates: start: 201206, end: 201207
  2. ANTIHISTAMINES [Concomitant]
     Indication: HYPERSENSITIVITY
  3. ANTIHISTAMINES [Concomitant]
     Indication: HYPERSENSITIVITY

REACTIONS (3)
  - Headache [Recovered/Resolved]
  - Pain [Recovered/Resolved]
  - Fatigue [Recovered/Resolved]
